FAERS Safety Report 6843528-7 (Version None)
Quarter: 2010Q3

REPORT INFORMATION
  Report Type: 
  Country: None (occurrence: None)
  Receive Date: 20100712
  Receipt Date: 20080909
  Transmission Date: 20110219
  Serious: Yes (Other)
  Sender: FDA-Public Use
  Company Number: 633826

PATIENT
  Age: 64 Year
  Sex: Male
  Weight: 85.3 kg

DRUGS (13)
  1. MORPHINE SULFATE [Suspect]
     Indication: PRODUCT USED FOR UNKNOWN INDICATION
     Dosage: 1 MG MILLIGRAM(S), 1 HOUR, INTRAVENOUS
     Route: 042
     Dates: start: 20080808, end: 20080808
  2. PRECEDEX [Suspect]
     Indication: SEDATIVE THERAPY
     Dosage: SEE IMAGE
     Route: 042
     Dates: start: 20080808, end: 20080808
  3. PRECEDEX [Suspect]
     Indication: SEDATIVE THERAPY
     Dosage: SEE IMAGE
     Route: 042
     Dates: start: 20080808, end: 20080808
  4. PRECEDEX [Suspect]
     Indication: SEDATIVE THERAPY
     Dosage: SEE IMAGE
     Route: 042
     Dates: start: 20080808, end: 20080808
  5. PRECEDEX [Suspect]
     Indication: SEDATIVE THERAPY
     Dosage: SEE IMAGE
     Route: 042
     Dates: start: 20080808, end: 20080808
  6. FENTANYL CITRATE [Concomitant]
  7. PROPOFOL [Concomitant]
  8. NALBUPHINE HCL INJ, USP (NALBUPHINE HYDROCHLORIDE) [Concomitant]
  9. MIDAZOLAM HCL [Concomitant]
  10. (ROCURONIUM) [Concomitant]
  11. (SULBACTAM) [Concomitant]
  12. HYDROXYZINE [Concomitant]
  13. DESFLURANE [Concomitant]

REACTIONS (1)
  - HYPOTENSION [None]
